FAERS Safety Report 6189123-7 (Version None)
Quarter: 2009Q2

REPORT INFORMATION
  Report Type: 
  Country: None (occurrence: None)
  Receive Date: 20090513
  Receipt Date: 20090202
  Transmission Date: 20091009
  Serious: No
  Sender: FDA-Public Use
  Company Number: A0766325A

PATIENT
  Sex: Female

DRUGS (1)
  1. TREXIMET [Suspect]

REACTIONS (1)
  - RASH [None]
